FAERS Safety Report 9919420 (Version 1)
Quarter: 2014Q1

REPORT INFORMATION
  Report Type: Spontaneous
  Country: US (occurrence: US)
  Receive Date: 20140224
  Receipt Date: 20140224
  Transmission Date: 20141002
  Serious: No
  Sender: FDA-Public Use
  Company Number: US-009507513-1402USA007509

PATIENT
  Sex: Male

DRUGS (2)
  1. JANUMET XR [Suspect]
     Indication: DIABETES MELLITUS
     Dosage: JANUMET XR 50/1000 ONCE DAILY
     Route: 048
  2. JANUMET [Suspect]
     Indication: GLYCOSYLATED HAEMOGLOBIN INCREASED
     Dosage: UNK
     Route: 048

REACTIONS (2)
  - Weight decreased [Recovered/Resolved]
  - Inappropriate schedule of drug administration [Unknown]
